FAERS Safety Report 7826391 (Version 6)
Quarter: 2013Q1

REPORT INFORMATION
  Report Type: Spontaneous
  Country: US (occurrence: US)
  Receive Date: 20110224
  Receipt Date: 20130220
  Transmission Date: 20140127
  Serious: Yes (Hospitalization, Other)
  Sender: FDA-Public Use
  Company Number: US-ASTRAZENECA-2011SE08970

PATIENT
  Age: 69 Year
  Sex: Female

DRUGS (4)
  1. SEROQUEL [Suspect]
     Indication: SLEEP DISORDER
     Route: 048
  2. SEROQUEL [Suspect]
     Indication: DEPRESSION
     Route: 048
  3. SEROQUEL [Suspect]
     Indication: SLEEP DISORDER
     Route: 048
  4. SEROQUEL [Suspect]
     Indication: DEPRESSION
     Route: 048

REACTIONS (15)
  - Spinal fracture [Unknown]
  - Foot fracture [Unknown]
  - Fall [Unknown]
  - Joint injury [Unknown]
  - Joint injury [Unknown]
  - Upper limb fracture [Unknown]
  - Spinal fracture [Unknown]
  - Mental disorder [Unknown]
  - Rib fracture [Unknown]
  - Anxiety [Unknown]
  - Back disorder [Unknown]
  - Panic attack [Unknown]
  - Ligament sprain [Unknown]
  - Weight increased [Unknown]
  - Impaired work ability [Unknown]
